FAERS Safety Report 10128853 (Version 1)
Quarter: 2014Q2

REPORT INFORMATION
  Report Type: Spontaneous
  Country: US (occurrence: None)
  Receive Date: 20140424
  Receipt Date: 20140424
  Transmission Date: 20141212
  Serious: Yes (Hospitalization)
  Sender: FDA-Public Use
  Company Number: None

PATIENT
  Age: 60 Year
  Sex: Female
  Weight: 88.1 kg

DRUGS (8)
  1. ZETIA [Suspect]
     Indication: DYSLIPIDAEMIA
     Route: 048
     Dates: start: 20131010, end: 20140410
  2. ZETIA [Suspect]
     Indication: BLOOD CREATINE PHOSPHOKINASE
     Route: 048
     Dates: start: 20131010, end: 20140410
  3. ZETIA [Suspect]
     Indication: MYALGIA
     Route: 048
     Dates: start: 20131010, end: 20140410
  4. ERGOCALCIFEROL [Concomitant]
  5. METOPROLOL SUCCINATE [Concomitant]
  6. MELOXICAM [Concomitant]
  7. CYCLOBENZAPRINE [Concomitant]
  8. LASIX [Concomitant]

REACTIONS (9)
  - Rhabdomyolysis [None]
  - Metabolic myopathy [None]
  - Arthralgia [None]
  - Myalgia [None]
  - Gait disturbance [None]
  - Muscular weakness [None]
  - Blood creatine phosphokinase increased [None]
  - Inflammation [None]
  - Lumbar radiculopathy [None]
